FAERS Safety Report 7231821-8 (Version None)
Quarter: 2011Q1

REPORT INFORMATION
  Report Type: 
  Country: None (occurrence: None)
  Receive Date: 20110118
  Receipt Date: 20101213
  Transmission Date: 20110831
  Serious: Yes (Hospitalization)
  Sender: FDA-Public Use
  Company Number: DE-ASTRAZENECA-2010SE53399

PATIENT
  Age: 21 Year
  Sex: Male

DRUGS (3)
  1. SEROQUEL [Suspect]
     Route: 048
     Dates: start: 20100101, end: 20100812
  2. ZOPICLONE [Suspect]
     Indication: SLEEP DISORDER
     Route: 048
     Dates: start: 20100811
  3. SEROQUEL [Suspect]
     Route: 048
     Dates: start: 20100813

REACTIONS (1)
  - COMA [None]
